FAERS Safety Report 19485895 (Version 1)
Quarter: 2021Q3

REPORT INFORMATION
  Report Type: Spontaneous
  Country: AR (occurrence: AR)
  Receive Date: 20210702
  Receipt Date: 20210702
  Transmission Date: 20211014
  Serious: Yes (Hospitalization, Other)
  Sender: FDA-Public Use
  Company Number: AR-PFIZER INC-2021747775

PATIENT
  Age: 4 Year
  Sex: Female

DRUGS (2)
  1. METHYLPREDNISOLONE. [Suspect]
     Active Substance: METHYLPREDNISOLONE
     Indication: CHRONIC HEPATITIS C
     Dosage: STANDARD DOSES
  2. AZATHIOPRINE. [Suspect]
     Active Substance: AZATHIOPRINE
     Indication: CHRONIC HEPATITIS C
     Dosage: STANDARD DOSES

REACTIONS (3)
  - Alopecia areata [Unknown]
  - Pancytopenia [Unknown]
  - Pyrexia [Unknown]
